FAERS Safety Report 6338274-2 (Version None)
Quarter: 2009Q3

REPORT INFORMATION
  Report Type: 
  Country: None (occurrence: None)
  Receive Date: 20090902
  Receipt Date: 20090824
  Transmission Date: 20100115
  Serious: Yes (Other)
  Sender: FDA-Public Use
  Company Number: FR-WATSON-2009-06921

PATIENT
  Age: 70 Year
  Sex: Female

DRUGS (1)
  1. DISULFIRAM (WATSON LABORATORIES) [Suspect]
     Indication: ALCOHOLISM
     Dosage: 500 MG, DAILY

REACTIONS (1)
  - PARKINSONISM [None]
